FAERS Safety Report 5914872-2 (Version None)
Quarter: 2008Q4

REPORT INFORMATION
  Report Type: 
  Country: None (occurrence: None)
  Receive Date: 20081010
  Receipt Date: 20081003
  Transmission Date: 20090506
  Serious: Yes (Hospitalization)
  Sender: FDA-Public Use
  Company Number: PHHY2008JP23725

PATIENT
  Age: 78 Year
  Sex: Female

DRUGS (4)
  1. DIOVAN [Suspect]
     Indication: HYPERTENSION
     Dosage: 80 MG, QD
     Route: 048
     Dates: start: 20071030, end: 20080117
  2. MAINTATE [Suspect]
     Indication: HYPERTENSION
     Dosage: 5 MG, QD
     Route: 048
     Dates: start: 20060213, end: 20080117
  3. ADALAT [Concomitant]
     Indication: HYPERTENSION
     Dosage: 20 MG
     Route: 048
     Dates: start: 20060213, end: 20080117
  4. BASEN [Concomitant]
     Dosage: 0.9 MG
     Route: 048
     Dates: end: 20080117

REACTIONS (1)
  - HYPOGLYCAEMIA [None]
